FAERS Safety Report 19954851 (Version 2)
Quarter: 2021Q4

REPORT INFORMATION
  Report Type: Spontaneous
  Country: US (occurrence: US)
  Receive Date: 20211013
  Receipt Date: 20211027
  Transmission Date: 20220304
  Serious: No
  Sender: FDA-Public Use
  Company Number: US-LUPIN PHARMACEUTICALS INC.-2021-19201

PATIENT
  Sex: Male

DRUGS (1)
  1. MOXIFLOXACIN [Suspect]
     Active Substance: MOXIFLOXACIN
     Indication: Eye infection bacterial
     Dosage: UNK
     Route: 047
     Dates: start: 20210904, end: 20210910

REACTIONS (7)
  - Dry eye [Unknown]
  - Product after taste [Unknown]
  - Vitreous floaters [Unknown]
  - Eye irritation [Unknown]
  - Sensitive skin [Unknown]
  - Heart rate increased [Unknown]
  - Condition aggravated [Unknown]

NARRATIVE: CASE EVENT DATE: 20210904
